FAERS Safety Report 4602696-8 (Version None)
Quarter: 2005Q1

REPORT INFORMATION
  Report Type: 
  Country: None (occurrence: None)
  Receive Date: 20050307
  Receipt Date: 20050209
  Transmission Date: 20050727
  Serious: Yes (Other)
  Sender: FDA-Public Use
  Company Number: 2005029262

PATIENT
  Age: 81 Year
  Sex: Female
  Weight: 58.2 kg

DRUGS (2)
  1. CELECOXIB (CELECOXIB) [Suspect]
     Indication: BREAST CANCER
     Dosage: ORAL
     Route: 048
     Dates: start: 20040218, end: 20041228
  2. EXEMESTANE [Suspect]
     Indication: BREAST CANCER
     Dosage: 25 MG (25 MG, 1 IN 1 D), ORAL
     Route: 048
     Dates: start: 20040218

REACTIONS (4)
  - CHEST WALL PAIN [None]
  - DEEP VEIN THROMBOSIS [None]
  - SWELLING [None]
  - TENDERNESS [None]
